FAERS Safety Report 5867180-2 (Version None)
Quarter: 2008Q3

REPORT INFORMATION
  Report Type: 
  Country: None (occurrence: None)
  Receive Date: 20080829
  Receipt Date: 20080829
  Transmission Date: 20090109
  Serious: Yes (Other)
  Sender: FDA-Public Use
  Company Number: None

PATIENT
  Age: 62 Year
  Sex: Female
  Weight: 78.0187 kg

DRUGS (1)
  1. MOVE FREE TRIPLE STRENTH SCHIFF [Suspect]
     Indication: ARTHRALGIA
     Dosage: 2 TABS TWICE DAILY PO
     Route: 048
     Dates: start: 20080201, end: 20080801

REACTIONS (5)
  - ALANINE AMINOTRANSFERASE INCREASED [None]
  - ASPARTATE AMINOTRANSFERASE INCREASED [None]
  - INFLAMMATION [None]
  - LIVER DISORDER [None]
  - TRANSAMINASES INCREASED [None]
